FAERS Safety Report 13500836 (Version 1)
Quarter: 2017Q2

REPORT INFORMATION
  Report Type: Spontaneous
  Country: US (occurrence: US)
  Receive Date: 20170501
  Receipt Date: 20170501
  Transmission Date: 20170830
  Serious: No
  Sender: FDA-Public Use
  Company Number: US-ROCHE-1823682

PATIENT
  Age: 75 Year
  Sex: Female

DRUGS (34)
  1. ESBRIET [Suspect]
     Active Substance: PIRFENIDONE
     Indication: PULMONARY EMBOLISM
     Dosage: 2ND FILL
     Route: 048
     Dates: start: 20160815
  2. PREDNISONE. [Concomitant]
     Active Substance: PREDNISONE
  3. LANOXIN [Concomitant]
     Active Substance: DIGOXIN
  4. ACETAMINOPHEN. [Concomitant]
     Active Substance: ACETAMINOPHEN
  5. DILTIAZEM HCL [Concomitant]
     Active Substance: DILTIAZEM HYDROCHLORIDE
     Dosage: DILTIAZEM HCL ER
     Route: 065
  6. DICYCLOMINE HCL [Concomitant]
     Active Substance: DICYCLOMINE HYDROCHLORIDE
  7. CARDIZEM CD [Concomitant]
     Active Substance: DILTIAZEM HYDROCHLORIDE
  8. ESBRIET [Suspect]
     Active Substance: PIRFENIDONE
     Indication: COR PULMONALE ACUTE
  9. ALBUTEROL SULFATE. [Concomitant]
     Active Substance: ALBUTEROL SULFATE
  10. LEVOTHYROXINE SODIUM. [Concomitant]
     Active Substance: LEVOTHYROXINE SODIUM
  11. FLUOXETINE HCL [Concomitant]
     Active Substance: FLUOXETINE HYDROCHLORIDE
  12. AZITHROMYCIN ANHYDROUS. [Concomitant]
     Active Substance: AZITHROMYCIN ANHYDROUS
  13. NORCO [Concomitant]
     Active Substance: ACETAMINOPHEN\HYDROCODONE BITARTRATE
  14. LASIX [Concomitant]
     Active Substance: FUROSEMIDE
  15. K-TAB [Concomitant]
     Active Substance: POTASSIUM CHLORIDE
  16. ACETAMINOPHEN AND CODEINE [Concomitant]
     Active Substance: ACETAMINOPHEN\CODEINE PHOSPHATE
  17. SPIRIVA [Concomitant]
     Active Substance: TIOTROPIUM BROMIDE MONOHYDRATE
  18. PROZAC [Concomitant]
     Active Substance: FLUOXETINE HYDROCHLORIDE
  19. PROTONIX [Concomitant]
     Active Substance: PANTOPRAZOLE SODIUM
  20. MEVACOR [Concomitant]
     Active Substance: LOVASTATIN
  21. ESTRACE [Concomitant]
     Active Substance: ESTRADIOL
  22. DELTASONE [Concomitant]
     Active Substance: PREDNISONE
  23. SYNTHROID [Concomitant]
     Active Substance: LEVOTHYROXINE SODIUM
  24. SULFACETAMIDE SODIUM. [Concomitant]
     Active Substance: SULFACETAMIDE SODIUM
     Dosage: ACNE
     Route: 065
  25. RESTORIL [Concomitant]
     Active Substance: TEMAZEPAM
  26. ESTRADIOL. [Concomitant]
     Active Substance: ESTRADIOL
  27. ALPRAZOLAM. [Concomitant]
     Active Substance: ALPRAZOLAM
  28. AMBIEN [Concomitant]
     Active Substance: ZOLPIDEM TARTRATE
  29. WARFARIN SODIUM. [Concomitant]
     Active Substance: WARFARIN SODIUM
  30. TRIAMCINOLONE ACETONIDE. [Concomitant]
     Active Substance: TRIAMCINOLONE ACETONIDE
  31. TEMAZEPAM. [Concomitant]
     Active Substance: TEMAZEPAM
  32. SYMBICORT [Concomitant]
     Active Substance: BUDESONIDE\FORMOTEROL FUMARATE DIHYDRATE
  33. BENTYL [Concomitant]
     Active Substance: DICYCLOMINE HYDROCHLORIDE
  34. B12-ACTIVE [Concomitant]

REACTIONS (10)
  - Decreased appetite [Unknown]
  - Medication error [Unknown]
  - Drug intolerance [Unknown]
  - Incorrect dose administered [Unknown]
  - Abdominal discomfort [Unknown]
  - Urinary retention [Unknown]
  - Nausea [Unknown]
  - Dyspepsia [Not Recovered/Not Resolved]
  - Gastric disorder [Not Recovered/Not Resolved]
  - Gastritis [Unknown]

NARRATIVE: CASE EVENT DATE: 20161125
